FAERS Safety Report 4791605-7 (Version None)
Quarter: 2005Q4

REPORT INFORMATION
  Report Type: 
  Country: None (occurrence: None)
  Receive Date: 20051007
  Receipt Date: 20050609
  Transmission Date: 20060501
  Serious: No
  Sender: FDA-Public Use
  Company Number: US-BRISTOL-MYERS SQUIBB COMPANY-12999363

PATIENT
  Age: 77 Year
  Sex: Female
  Weight: 85 kg

DRUGS (9)
  1. AVAPRO [Suspect]
     Indication: HYPERTENSION
     Dosage: ONCE DAILY AT 12 NOON ABOUT 4 MONTHS AGO; DOSE REDUCTED TO 150MG DAILY 1 + 1/2 MONTHS AGO
     Route: 048
     Dates: start: 20050101
  2. ALPHA-LIPOIC ACID [Concomitant]
     Dosage: 600 UITS PER DAY IN 3 DOSES
  3. DHEA [Concomitant]
  4. GLYBURIDE [Concomitant]
  5. LEVOTHROID [Concomitant]
  6. LIPITOR [Concomitant]
  7. LISINOPRIL [Concomitant]
  8. METFORMIN HCL [Concomitant]
  9. VERAPAMIL [Concomitant]

REACTIONS (2)
  - ABDOMINAL DISTENSION [None]
  - WEIGHT INCREASED [None]
